FAERS Safety Report 9270843 (Version 1)
Quarter: 2013Q2

REPORT INFORMATION
  Report Type: Spontaneous
  Country: IR (occurrence: IR)
  Receive Date: 20130503
  Receipt Date: 20130503
  Transmission Date: 20140414
  Serious: Yes (Life-Threatening)
  Sender: FDA-Public Use
  Company Number: IR-ASTRAZENECA-2013SE29756

PATIENT
  Age: 60 Year
  Sex: Male
  Weight: 80 kg

DRUGS (1)
  1. SYMBICORT [Suspect]
     Dosage: 320, UNKNOWN FREQUENCY
     Route: 055

REACTIONS (4)
  - Ventricular tachycardia [Unknown]
  - Disseminated intravascular coagulation [Unknown]
  - Shock [Unknown]
  - Atrial fibrillation [Recovered/Resolved]
